FAERS Safety Report 16357400 (Version 1)
Quarter: 2019Q2

REPORT INFORMATION
  Report Type: Spontaneous
  Country: HU (occurrence: HU)
  Receive Date: 20190527
  Receipt Date: 20190527
  Transmission Date: 20190711
  Serious: Yes (Hospitalization, Other)
  Sender: FDA-Public Use
  Company Number: HU-ASTELLAS-2019US022340

PATIENT
  Age: 44 Year
  Sex: Female

DRUGS (3)
  1. TACROLIMUS. [Suspect]
     Active Substance: TACROLIMUS
     Indication: RENAL AND PANCREAS TRANSPLANT
     Dosage: 0.5 MG, TWICE DAILY
     Route: 065
  2. METOPROLOL. [Concomitant]
     Active Substance: METOPROLOL
     Indication: RENAL AND PANCREAS TRANSPLANT
     Route: 065
  3. MYCOPHENOLIC ACID. [Concomitant]
     Active Substance: MYCOPHENOLIC ACID
     Indication: RENAL AND PANCREAS TRANSPLANT
     Route: 065

REACTIONS (5)
  - Portal hypertension [Unknown]
  - Gastrointestinal haemorrhage [Unknown]
  - Microcytic anaemia [Unknown]
  - Thrombocytopenia [Unknown]
  - Product use in unapproved indication [Unknown]
